FAERS Safety Report 24392024 (Version 1)
Quarter: 2024Q4

REPORT INFORMATION
  Report Type: Spontaneous
  Country: US (occurrence: US)
  Receive Date: 20241003
  Receipt Date: 20241003
  Transmission Date: 20250115
  Serious: No
  Sender: BAYER
  Company Number: US-BAYER-2024A140689

PATIENT

DRUGS (1)
  1. MIRALAX [Suspect]
     Active Substance: POLYETHYLENE GLYCOL 3350
     Indication: Colonoscopy
     Dosage: 14 DOSES WITH GATORADE

REACTIONS (4)
  - Dehydration [Unknown]
  - Diarrhoea [Unknown]
  - Blood sodium decreased [Unknown]
  - Off label use [Unknown]
